FAERS Safety Report 5113431-1 (Version None)
Quarter: 2006Q3

REPORT INFORMATION
  Report Type: 
  Country: None (occurrence: None)
  Receive Date: 20060921
  Receipt Date: 20060921
  Transmission Date: 20061208
  Serious: No
  Sender: FDA-Public Use
  Company Number: None

PATIENT
  Sex: Male
  Weight: 99.7913 kg

DRUGS (13)
  1. GABAPENTIN [Suspect]
     Indication: HERPES ZOSTER
     Dosage: 300 TID PO
     Route: 048
     Dates: start: 20060731, end: 20060823
  2. GABAPENTIN [Suspect]
     Indication: PAIN
     Dosage: 300 TID PO
     Route: 048
     Dates: start: 20060731, end: 20060823
  3. ACYCLOVIR [Concomitant]
  4. ASPIRIN [Concomitant]
  5. CAPSAICINO [Concomitant]
  6. CITALOPRAM HYDROBROMIDE [Concomitant]
  7. HYDROCHLOROTHIAZDE TAB [Concomitant]
  8. HYDROCODONE 5/ ACETAMINIPHEN 500 MG [Concomitant]
  9. OMEPRAZOLE [Concomitant]
  10. PHYTONADIONE [Concomitant]
  11. TAMSULOSIN HCL [Concomitant]
  12. VARDENAFIL HCL [Concomitant]
  13. COUMADIN [Concomitant]

REACTIONS (1)
  - MOOD ALTERED [None]
